FAERS Safety Report 9568004 (Version 1)
Quarter: 2013Q3

REPORT INFORMATION
  Report Type: Spontaneous
  Country: US (occurrence: US)
  Receive Date: 20130930
  Receipt Date: 20130930
  Transmission Date: 20140515
  Serious: No
  Sender: FDA-Public Use
  Company Number: US-AMGEN-USASP2013057849

PATIENT
  Age: 20 Year
  Sex: Male

DRUGS (3)
  1. ENBREL [Suspect]
     Indication: PSORIASIS
     Dosage: UNK UNK, 2 TIMES/WK
     Route: 058
  2. ADDERALL [Concomitant]
     Dosage: UNK
  3. CLOBETASOL [Concomitant]
     Dosage: UNK

REACTIONS (1)
  - Injection site pain [Unknown]
